FAERS Safety Report 6914510-6 (Version None)
Quarter: 2010Q3

REPORT INFORMATION
  Report Type: 
  Country: None (occurrence: None)
  Receive Date: 20100809
  Receipt Date: 20100805
  Transmission Date: 20110219
  Serious: Yes (Hospitalization)
  Sender: FDA-Public Use
  Company Number: FR-SANOFI-AVENTIS-2010SA046412

PATIENT
  Age: 74 Year
  Sex: Female

DRUGS (11)
  1. CORTANCYL [Suspect]
     Route: 048
  2. LASIX [Suspect]
     Route: 048
  3. METOJECT [Suspect]
     Indication: RHEUMATOID ARTHRITIS
     Dosage: DOSE:10 MILLIGRAM(S)/MILLILITRE
     Route: 058
     Dates: start: 20080901
  4. MABTHERA [Suspect]
     Indication: RHEUMATOID ARTHRITIS
     Route: 042
     Dates: start: 20091201, end: 20091201
  5. VALACYCLOVIR [Suspect]
     Route: 048
     Dates: start: 20100601, end: 20100601
  6. SKENAN [Suspect]
     Route: 048
  7. MORPHINE [Suspect]
     Route: 048
  8. ESOMEPRAZOLE MAGNESIUM [Suspect]
     Route: 048
  9. TRAMADOL HCL [Suspect]
     Route: 048
  10. PREVISCAN [Suspect]
     Route: 048
  11. ACTONEL [Suspect]
     Route: 048

REACTIONS (1)
  - INTERSTITIAL LUNG DISEASE [None]
